FAERS Safety Report 13882384 (Version 2)
Quarter: 2017Q3

REPORT INFORMATION
  Report Type: Spontaneous
  Country: US (occurrence: US)
  Receive Date: 20170818
  Receipt Date: 20170818
  Transmission Date: 20171127
  Serious: Yes (Death, Other)
  Sender: FDA-Public Use
  Company Number: PHHY2017US121026

PATIENT
  Age: 55 Year
  Sex: Male

DRUGS (2)
  1. CICLOSPORIN [Suspect]
     Active Substance: CYCLOSPORINE
     Indication: STEM CELL TRANSPLANT
     Route: 065
  2. PREDNISONE. [Suspect]
     Active Substance: PREDNISONE
     Indication: STEM CELL TRANSPLANT
     Dosage: 1 MG/KG, UNK
     Route: 065

REACTIONS (6)
  - General physical health deterioration [Fatal]
  - Cough [Fatal]
  - Aspergillus infection [Fatal]
  - Acute respiratory distress syndrome [Unknown]
  - Weight decreased [Fatal]
  - Pneumonia escherichia [Unknown]
